FAERS Safety Report 24989233 (Version 1)
Quarter: 2025Q1

REPORT INFORMATION
  Report Type: Spontaneous
  Country: JP (occurrence: JP)
  Receive Date: 20250220
  Receipt Date: 20250220
  Transmission Date: 20250409
  Serious: Yes (Other)
  Sender: ASTELLAS
  Company Number: JP-ASTELLAS-2024-AER-007457

PATIENT

DRUGS (2)
  1. GILTERITINIB [Suspect]
     Active Substance: GILTERITINIB
     Indication: Acute myeloid leukaemia
     Route: 065
  2. GILTERITINIB [Suspect]
     Active Substance: GILTERITINIB
     Route: 065

REACTIONS (2)
  - Acute myeloid leukaemia recurrent [Not Recovered/Not Resolved]
  - Therapeutic response decreased [Unknown]
